FAERS Safety Report 6589006-4 (Version None)
Quarter: 2010Q1

REPORT INFORMATION
  Report Type: 
  Country: None (occurrence: None)
  Receive Date: 20100212
  Receipt Date: 20100121
  Transmission Date: 20100710
  Serious: Yes (Death)
  Sender: FDA-Public Use
  Company Number: 262792

PATIENT
  Age: 63 Year
  Sex: Female
  Weight: 80 kg

DRUGS (2)
  1. ETOPOSIDE [Suspect]
     Indication: SMALL CELL LUNG CANCER METASTATIC
     Dosage: 210 MG, 1 TOTAL, INTRAVENOUS
     Route: 042
     Dates: start: 20090122, end: 20090122
  2. CISPLATIN [Suspect]
     Indication: SMALL CELL LUNG CANCER METASTATIC
     Dosage: 133 MG, 1 TOTAL, INTRAVENOUS
     Route: 042
     Dates: start: 20090122, end: 20090122

REACTIONS (1)
  - NEUTROPENIC SEPSIS [None]
